FAERS Safety Report 7798004-4 (Version None)
Quarter: 2011Q4

REPORT INFORMATION
  Report Type: 
  Country: None (occurrence: None)
  Receive Date: 20111005
  Receipt Date: 20110920
  Transmission Date: 20120403
  Serious: Yes (Other)
  Sender: FDA-Public Use
  Company Number: GB-WATSON-2011-15089

PATIENT

DRUGS (1)
  1. LEVETIRACETAM [Suspect]
     Indication: PRODUCT USED FOR UNKNOWN INDICATION

REACTIONS (6)
  - SOMNOLENCE [None]
  - VOMITING [None]
  - TREMOR [None]
  - PERIPHERAL COLDNESS [None]
  - AGITATION [None]
  - EATING DISORDER [None]
